FAERS Safety Report 18314803 (Version 5)
Quarter: 2021Q4

REPORT INFORMATION
  Report Type: Report from Study
  Country: US (occurrence: US)
  Receive Date: 20200925
  Receipt Date: 20211014
  Transmission Date: 20220303
  Serious: Yes (Other)
  Sender: FDA-Public Use
  Company Number: US-PFIZER INC-2020368694

PATIENT
  Age: 53 Year
  Sex: Female

DRUGS (3)
  1. IBRANCE [Suspect]
     Active Substance: PALBOCICLIB
     Indication: Breast cancer female
     Dosage: 125 MG, CYCLIC(PT TAKES FOR 21 DAYS ON, 7 OFF.)
     Route: 048
     Dates: start: 202006, end: 2020
  2. IBRANCE [Suspect]
     Active Substance: PALBOCICLIB
     Dosage: 125 MG, CYCLIC(PT TAKES FOR 21 DAYS ON, 7 OFF.)
     Route: 048
     Dates: start: 2020, end: 202105
  3. IBRANCE [Suspect]
     Active Substance: PALBOCICLIB
     Dosage: 125 MG, CYCLIC (21 DAYS ON, 7 OFF)
     Route: 048
     Dates: start: 202108

REACTIONS (22)
  - Renal impairment [Unknown]
  - Hepatic enzyme abnormal [Unknown]
  - White blood cell count decreased [Recovering/Resolving]
  - Nausea [Unknown]
  - Fatigue [Unknown]
  - Headache [Unknown]
  - Asthenia [Unknown]
  - Red blood cell count decreased [Recovering/Resolving]
  - Blood creatinine abnormal [Unknown]
  - Product dose omission issue [Unknown]
  - Impaired healing [Unknown]
  - Neoplasm progression [Unknown]
  - Rash [Recovering/Resolving]
  - Somnolence [Unknown]
  - Abdominal discomfort [Recovered/Resolved]
  - Rash [Recovering/Resolving]
  - Paraesthesia [Recovering/Resolving]
  - Skin burning sensation [Recovering/Resolving]
  - Erythema [Recovering/Resolving]
  - Pain of skin [Recovering/Resolving]
  - Skin exfoliation [Recovering/Resolving]
  - Vomiting [Recovering/Resolving]

NARRATIVE: CASE EVENT DATE: 20200101
